FAERS Safety Report 9507435 (Version 4)
Quarter: 2015Q2

REPORT INFORMATION
  Report Type: Spontaneous
  Country: US (occurrence: US)
  Receive Date: 20130909
  Receipt Date: 20150619
  Transmission Date: 20150821
  Serious: Yes (Death, Disabling)
  Sender: FDA-Public Use
  Company Number: US-SANOFI-AVENTIS-2013SA088377

PATIENT
  Age: 88 Year
  Sex: Female

DRUGS (45)
  1. PLAVIX [Suspect]
     Active Substance: CLOPIDOGREL BISULFATE
     Indication: CEREBROVASCULAR ACCIDENT
     Route: 048
     Dates: start: 20100605, end: 20120124
  2. NARCAN [Concomitant]
     Active Substance: NALOXONE HYDROCHLORIDE
     Route: 042
     Dates: start: 20021024
  3. NITROGLYCERINE [Concomitant]
     Active Substance: NITROGLYCERIN
     Dates: start: 20100529
  4. LOTENSIN [Concomitant]
     Active Substance: BENAZEPRIL HYDROCHLORIDE
     Dosage: DOSE: 20/12.5 MG
     Route: 048
  5. ACTONEL [Concomitant]
     Active Substance: RISEDRONATE SODIUM
     Dosage: STRENGTH: 35MG
  6. ATACAND [Concomitant]
     Active Substance: CANDESARTAN CILEXETIL
     Dosage: STRENGTH: 16 MG
     Route: 048
  7. PLAVIX [Suspect]
     Active Substance: CLOPIDOGREL BISULFATE
     Indication: DIABETES MELLITUS
     Route: 048
     Dates: start: 20100605, end: 20120124
  8. ACTOS [Concomitant]
     Active Substance: PIOGLITAZONE HYDROCHLORIDE
     Dosage: STRENGTH: 15MG
     Route: 048
  9. CALCIUM [Concomitant]
     Active Substance: CALCIUM
     Route: 048
  10. GLIPIZIDE. [Concomitant]
     Active Substance: GLIPIZIDE
     Dosage: 2 TIMES PER DAY BEFORE MEALS, STRENGTH: 10MG
     Route: 048
  11. SUMATRIPTAN SUCCINATE. [Concomitant]
     Active Substance: SUMATRIPTAN SUCCINATE
     Indication: HEADACHE
     Dosage: FREQUENCY: AT ONSET OF HEADACHE THEN MAY REPEAT IN 2 HOURS IF ?NEEDED
     Route: 048
  12. LISINOPRIL. [Concomitant]
     Active Substance: LISINOPRIL
     Route: 048
  13. ASPIRIN. [Concomitant]
     Active Substance: ASPIRIN
     Dates: start: 20100529
  14. LASIX [Concomitant]
     Active Substance: FUROSEMIDE
     Indication: OEDEMA
     Dosage: 20 MG TAB, ONE QAM UNTIL EDEMA RESOLVED THEN PRN
  15. SINGULAIR [Concomitant]
     Active Substance: MONTELUKAST SODIUM
     Route: 048
  16. POTASSIUM CHLORIDE. [Concomitant]
     Active Substance: POTASSIUM CHLORIDE
  17. ZYRTEC [Concomitant]
     Active Substance: CETIRIZINE HYDROCHLORIDE
     Dosage: STRENGTH: 10 MG
     Route: 048
  18. COLACE [Concomitant]
     Active Substance: DOCUSATE SODIUM
     Route: 048
     Dates: start: 20021025
  19. REGLAN [Concomitant]
     Active Substance: METOCLOPRAMIDE HYDROCHLORIDE
     Route: 042
     Dates: start: 20021024
  20. SURFAK [Concomitant]
  21. PLAVIX [Suspect]
     Active Substance: CLOPIDOGREL BISULFATE
     Indication: DIABETES MELLITUS
     Route: 048
  22. ASPIRIN. [Concomitant]
     Active Substance: ASPIRIN
  23. ASPIRIN. [Concomitant]
     Active Substance: ASPIRIN
     Dosage: DELAYED RELEASE TABLET
     Route: 048
  24. CELEBREX [Concomitant]
     Active Substance: CELECOXIB
     Dosage: STRENGTH: 200MG
     Route: 048
  25. HYDROCHLOROTHIAZIDE. [Concomitant]
     Active Substance: HYDROCHLOROTHIAZIDE
     Dosage: STRENGTH: 12.5 MG
     Route: 048
  26. HYDROCODONE W/ACETAMINOPHEN [Concomitant]
     Active Substance: ACETAMINOPHEN\HYDROCODONE BITARTRATE
     Dosage: DOSE: 5MG/500MG
  27. POTASSIUM CHLORIDE. [Concomitant]
     Active Substance: POTASSIUM CHLORIDE
  28. MOTRIN [Concomitant]
     Active Substance: IBUPROFEN
     Dosage: DOSE: 1.5-2
     Route: 048
     Dates: start: 20021024
  29. ZOFRAN [Concomitant]
     Active Substance: ONDANSETRON HYDROCHLORIDE
     Dates: start: 20100529
  30. FERROUS SULFATE [Concomitant]
     Active Substance: FERROUS SULFATE\FERROUS SULFATE, DRIED
     Route: 048
  31. PLAVIX [Suspect]
     Active Substance: CLOPIDOGREL BISULFATE
     Indication: CEREBROVASCULAR ACCIDENT
     Route: 048
     Dates: start: 20100529
  32. MAGNESIUM OXIDE. [Concomitant]
     Active Substance: MAGNESIUM OXIDE
     Route: 048
  33. NADOLOL. [Concomitant]
     Active Substance: NADOLOL
  34. POTASSIUM CHLORIDE. [Concomitant]
     Active Substance: POTASSIUM CHLORIDE
  35. CALCIUM CARBONATE. [Concomitant]
     Active Substance: CALCIUM CARBONATE
  36. CALTRATE [Concomitant]
     Active Substance: CALCIUM CARBONATE
  37. DIFLUCAN [Concomitant]
     Active Substance: FLUCONAZOLE
  38. HYDROXYZINE [Concomitant]
     Active Substance: HYDROXYZINE\HYDROXYZINE HYDROCHLORIDE
     Dosage: DOSE: 1 OR 2 TABLET(S), STRENGTH: 25 MG EVERY 8 HR
     Route: 048
  39. HEPARIN [Concomitant]
     Active Substance: HEPARIN SODIUM
     Dosage: DOSE:4000 UNIT(S)
     Dates: start: 20100529
  40. PLAVIX [Suspect]
     Active Substance: CLOPIDOGREL BISULFATE
     Indication: DIABETES MELLITUS
     Route: 048
     Dates: start: 20100529
  41. PLAVIX [Suspect]
     Active Substance: CLOPIDOGREL BISULFATE
     Indication: CEREBROVASCULAR ACCIDENT
     Route: 048
  42. VITAMIN D [Concomitant]
     Active Substance: CHOLECALCIFEROL
     Route: 048
  43. CORGARD [Concomitant]
     Active Substance: NADOLOL
  44. GLUCOTROL [Concomitant]
     Active Substance: GLIPIZIDE
     Route: 048
     Dates: start: 20021024
  45. VASOTEC [Concomitant]
     Active Substance: ENALAPRIL MALEATE
     Route: 048
     Dates: start: 20021024

REACTIONS (3)
  - Multiple injuries [Fatal]
  - Gastrointestinal haemorrhage [Fatal]
  - Product use issue [Unknown]

NARRATIVE: CASE EVENT DATE: 20100529
